FAERS Safety Report 24022964 (Version 1)
Quarter: 2024Q2

REPORT INFORMATION
  Report Type: Spontaneous
  Country: US (occurrence: US)
  Receive Date: 20240627
  Receipt Date: 20240627
  Transmission Date: 20240716
  Serious: No
  Sender: FDA-Public Use
  Company Number: US-ROCHE-3555877

PATIENT

DRUGS (2)
  1. VABYSMO [Suspect]
     Active Substance: FARICIMAB\FARICIMAB-SVOA
     Indication: Post procedural swelling
     Dosage: EVERY 4 WEEKS FOR THE FIRST 6 MONTHS AND THEN PRN, AS NEEDED?2ND SHOT AFTER 16 WEEKS
     Route: 050
  2. AVASTIN [Suspect]
     Active Substance: BEVACIZUMAB
     Indication: Post procedural swelling
     Route: 050

REACTIONS (3)
  - Off label use [Unknown]
  - Off label use [Unknown]
  - Diabetes mellitus [Not Recovered/Not Resolved]
